FAERS Safety Report 5095878-5 (Version None)
Quarter: 2006Q3

REPORT INFORMATION
  Report Type: 
  Country: None (occurrence: None)
  Receive Date: 20060727
  Receipt Date: 20060424
  Transmission Date: 20061208
  Serious: No
  Sender: FDA-Public Use
  Company Number: FACT0600230

PATIENT
  Age: 22 Year
  Sex: Male
  Weight: 104.3 kg

DRUGS (1)
  1. FACTIVE [Suspect]
     Indication: RESPIRATORY TRACT INFECTION BACTERIAL
     Dosage: 320 MG, QD, ORAL
     Route: 048
     Dates: start: 20060414, end: 20060417

REACTIONS (2)
  - GASTROENTERITIS VIRAL [None]
  - URTICARIA [None]
